FAERS Safety Report 4542967-7 (Version None)
Quarter: 2004Q4

REPORT INFORMATION
  Report Type: 
  Country: None (occurrence: None)
  Receive Date: 20041229
  Receipt Date: 20041223
  Transmission Date: 20050328
  Serious: Yes (Other)
  Sender: FDA-Public Use
  Company Number: 25697

PATIENT
  Age: 66 Year
  Sex: Male

DRUGS (12)
  1. METRONIDAZOLE [Suspect]
     Indication: TOOTH DISORDER
     Dosage: (400 MG 3 IN 1 DAY(S)
     Route: 048
     Dates: start: 20041117, end: 20041119
  2. LANTUS [Suspect]
     Indication: DIABETES MELLITUS
     Route: 030
     Dates: start: 20040701
  3. LOSARTAN   (LOSARTAN) [Concomitant]
  4. METFORMIN HCL [Concomitant]
     Indication: DIABETES MELLITUS
  5. CO-PRAMOXOL (PARACETAMOL, DEXTROPROPOXYPHENE) [Concomitant]
  6. PIROXICAM [Concomitant]
  7. ATORVASTATIN (ATORVASTATIN) [Concomitant]
  8. ASPIRIN [Concomitant]
  9. SILDENAFIL (SILDENAFIL) [Concomitant]
  10. NASONEX (MOMETASONE [Concomitant]
  11. AMOXICILLIN [Concomitant]
  12. NASEPTIN (NEOMYCIN, CHLORHEXIDINE) [Concomitant]

REACTIONS (4)
  - BLOOD PRESSURE INCREASED [None]
  - DIABETES MELLITUS INADEQUATE CONTROL [None]
  - DRUG INTERACTION [None]
  - HYPOGLYCAEMIA [None]
